FAERS Safety Report 5888158-9 (Version None)
Quarter: 2008Q3

REPORT INFORMATION
  Report Type: 
  Country: None (occurrence: None)
  Receive Date: 20080918
  Receipt Date: 20080910
  Transmission Date: 20090109
  Serious: Yes (Hospitalization)
  Sender: FDA-Public Use
  Company Number: FR-ASTRAZENECA-2008CG01322

PATIENT
  Age: 26727 Day
  Sex: Male

DRUGS (1)
  1. NEXIUM [Suspect]
     Indication: DUODENAL ULCER
     Route: 048
     Dates: start: 20080707, end: 20080730

REACTIONS (1)
  - TOXIC SKIN ERUPTION [None]
